FAERS Safety Report 13603355 (Version 1)
Quarter: 2017Q2

REPORT INFORMATION
  Report Type: Spontaneous
  Country: IR (occurrence: IR)
  Receive Date: 20170601
  Receipt Date: 20170601
  Transmission Date: 20170830
  Serious: Yes (Death, Other)
  Sender: FDA-Public Use
  Company Number: IR-IMPAX LABORATORIES, INC-2017-IPXL-01558

PATIENT
  Age: 65 Year
  Sex: Male

DRUGS (3)
  1. CLINDAMYCIN HYDROCHLORIDE. [Suspect]
     Active Substance: CLINDAMYCIN HYDROCHLORIDE
     Indication: ANTHRAX
     Dosage: 600 MG, EVERY 8HR
     Route: 042
  2. CIPROFLOXACIN. [Suspect]
     Active Substance: CIPROFLOXACIN
     Indication: ANTHRAX
     Dosage: 400 MG, EVERY 12HR
     Route: 042
  3. PENICILLIN                         /00000901/ [Suspect]
     Active Substance: PENICILLIN G
     Indication: ANTHRAX
     Dosage: 2 MILLION IU, EVERY 2HR
     Route: 042

REACTIONS (7)
  - Sepsis [Fatal]
  - Hepatic enzyme increased [Unknown]
  - Haemoglobin decreased [Unknown]
  - Jaundice [Unknown]
  - Respiratory distress [Fatal]
  - Haematocrit decreased [Unknown]
  - Platelet count decreased [Unknown]
